FAERS Safety Report 5190960-6 (Version None)
Quarter: 2006Q4

REPORT INFORMATION
  Report Type: 
  Country: None (occurrence: None)
  Receive Date: 20061222
  Receipt Date: 20060608
  Transmission Date: 20070319
  Serious: Yes (Hospitalization)
  Sender: FDA-Public Use
  Company Number: NL-ABBOTT-06P-114-0335547-00

PATIENT
  Sex: Female

DRUGS (8)
  1. ERYTHROMYCIN-ES [Suspect]
     Indication: RESPIRATORY TRACT INFECTION
     Dates: start: 20060220, end: 20060227
  2. ESTROGENS CONJUGATED [Suspect]
     Indication: MENOPAUSAL SYMPTOMS
     Route: 048
     Dates: start: 20060101, end: 20060227
  3. OMEPRAZOLE MAGNESIUM [Concomitant]
     Indication: DRUG USE FOR UNKNOWN INDICATION
     Route: 048
     Dates: end: 20060227
  4. OMEPRAZOLE [Concomitant]
     Indication: DRUG USE FOR UNKNOWN INDICATION
  5. FLUIMUCIL BRUISTABLET [Concomitant]
     Indication: DRUG USE FOR UNKNOWN INDICATION
  6. BUDESONIDE [Concomitant]
     Indication: DRUG USE FOR UNKNOWN INDICATION
  7. SALBUTAMOL NOVOLIZER [Concomitant]
     Indication: DRUG USE FOR UNKNOWN INDICATION
  8. PREDNISONE TAB [Concomitant]
     Indication: DRUG USE FOR UNKNOWN INDICATION

REACTIONS (9)
  - APATHY [None]
  - BREATH SOUNDS ABNORMAL [None]
  - CHOLECYSTITIS [None]
  - COUGH [None]
  - DYSPNOEA [None]
  - ERUCTATION [None]
  - FATIGUE [None]
  - HEPATITIS [None]
  - LIVER DISORDER [None]
